FAERS Safety Report 8726325 (Version 5)
Quarter: 2013Q2

REPORT INFORMATION
  Report Type: Report from Study
  Country: US (occurrence: US)
  Receive Date: 20120816
  Receipt Date: 20130603
  Transmission Date: 20140414
  Serious: Yes (Other)
  Sender: FDA-Public Use
  Company Number: US-GENZYME-LEUK-1000292

PATIENT
  Age: 61 Year
  Sex: Male
  Weight: 80.6 kg

DRUGS (6)
  1. LEUKINE [Suspect]
     Indication: MALIGNANT MELANOMA
     Dosage: 250 MCG (INDUCTION THERAPY), CYCLE 1-4
     Route: 058
     Dates: start: 20110712
  2. LEUKINE [Suspect]
     Dosage: 250 MCG, QD (ON DAYS 1-14) MAINTENANCE THERAPY, CYCLE 10
     Route: 058
     Dates: start: 20120117, end: 20120130
  3. LEUKINE [Suspect]
     Dosage: 250 MCG (MAINTENANCE THERAPY) CYCLE 11
     Route: 058
     Dates: start: 20120207, end: 20120218
  4. IPILIMUMAB [Suspect]
     Indication: MALIGNANT MELANOMA
     Dosage: 10 MG/KG OVER 90 MIN ON DAY 1 (INDUCTION THERAPY)
     Route: 042
     Dates: start: 20110712
  5. IPILIMUMAB [Suspect]
     Dosage: 10 MG/KG OVER 90 MIN ON DAY 1 Q12 WEEKS (MAINTENANCE THERAPY)
     Route: 042
     Dates: end: 20120228
  6. IPILIMUMAB [Suspect]

REACTIONS (9)
  - Pancreatitis [Unknown]
  - Fatigue [Unknown]
  - Stomatitis [Recovered/Resolved]
  - Arthralgia [Recovered/Resolved]
  - Myalgia [Recovered/Resolved]
  - Decreased appetite [Recovered/Resolved]
  - Abdominal pain [Recovered/Resolved]
  - Lipase increased [Recovered/Resolved]
  - Amylase increased [Recovered/Resolved]
